FAERS Safety Report 5196330-9 (Version None)
Quarter: 2007Q1

REPORT INFORMATION
  Report Type: 
  Country: None (occurrence: None)
  Receive Date: 20070102
  Receipt Date: 20061221
  Transmission Date: 20070707
  Serious: Yes (Hospitalization)
  Sender: FDA-Public Use
  Company Number: SE-PFIZER INC-2006155575

PATIENT
  Sex: Male

DRUGS (1)
  1. SU-011,248 [Suspect]
     Indication: VON HIPPEL-LINDAU DISEASE
     Route: 048

REACTIONS (3)
  - ANAEMIA [None]
  - INFECTION [None]
  - PAIN [None]
